FAERS Safety Report 10956584 (Version 1)
Quarter: 2015Q1

REPORT INFORMATION
  Report Type: Spontaneous
  Country: US (occurrence: US)
  Receive Date: 20150326
  Receipt Date: 20150326
  Transmission Date: 20150721
  Serious: No
  Sender: FDA-Public Use
  Company Number: US-SHIRE-US201502616

PATIENT
  Age: 13 Year
  Sex: Male

DRUGS (2)
  1. VYVANSE [Suspect]
     Active Substance: LISDEXAMFETAMINE DIMESYLATE
     Dosage: UNK (DIVIDED CONTENT OF 30 MG CAPSULES), 1X/DAY:QD (AT 7 AM)
     Route: 048
     Dates: start: 201410
  2. VYVANSE [Suspect]
     Active Substance: LISDEXAMFETAMINE DIMESYLATE
     Indication: PRODUCT USED FOR UNKNOWN INDICATION
     Dosage: UNK (DIVIDED CONTENT OF 30 MG CAPSULES), 1X/DAY:QD (AT 7 AM)
     Route: 048
     Dates: start: 201308, end: 2014

REACTIONS (4)
  - Sluggishness [Not Recovered/Not Resolved]
  - Lethargy [Not Recovered/Not Resolved]
  - Drug prescribing error [Not Recovered/Not Resolved]
  - Insomnia [Not Recovered/Not Resolved]
